FAERS Safety Report 9440159 (Version 1)
Quarter: 2013Q3

REPORT INFORMATION
  Report Type: Report from Study
  Country: BR (occurrence: BR)
  Receive Date: 20130805
  Receipt Date: 20130805
  Transmission Date: 20140515
  Serious: Yes (Other)
  Sender: FDA-Public Use
  Company Number: PHHY2013BR080767

PATIENT
  Age: 36 Year
  Sex: Female
  Weight: 55 kg

DRUGS (9)
  1. MYFORTIC [Suspect]
     Indication: RENAL TRANSPLANT
     Dosage: 720 MG, BID
     Dates: start: 20090808
  2. MYFORTIC [Suspect]
     Dosage: 720 MG, UNK
     Route: 048
     Dates: end: 20120410
  3. SIMULECT [Suspect]
     Indication: RENAL TRANSPLANT
     Dosage: 20 MG, ON DAY 0
     Route: 042
     Dates: start: 20090808
  4. SIMULECT [Suspect]
     Dosage: 20 MG, ON DAY 4
     Route: 042
     Dates: end: 20090812
  5. PROGRAF [Suspect]
     Indication: IMMUNOSUPPRESSION
     Dosage: 2 MG, BID
     Route: 048
     Dates: start: 20090808
  6. PREDNISONE [Suspect]
     Indication: IMMUNOSUPPRESSION
     Dosage: 5 MG, UNK
     Route: 048
     Dates: start: 20090808
  7. RAPAMUNE [Concomitant]
     Indication: IMMUNOSUPPRESSION
     Dosage: 2 MG, UNK
     Route: 048
     Dates: start: 20120410
  8. PROPRANOLOL [Concomitant]
     Indication: HYPERTENSION
     Dosage: 40 MG, BID
     Route: 048
     Dates: start: 20090818
  9. RANITIDIN [Concomitant]
     Indication: GASTRIC DISORDER
     Dosage: 150 MG, BID
     Route: 048
     Dates: start: 20090818

REACTIONS (10)
  - Colitis [Recovered/Resolved]
  - Dehydration [Recovered/Resolved]
  - Diarrhoea [Recovering/Resolving]
  - Blood pressure decreased [Recovered/Resolved]
  - Abdominal pain [Not Recovered/Not Resolved]
  - Weight decreased [Not Recovered/Not Resolved]
  - Blood potassium decreased [Recovered/Resolved]
  - Blood urea increased [Recovered/Resolved]
  - Drug intolerance [Unknown]
  - Blood creatinine increased [Recovered/Resolved]
